FAERS Safety Report 7620997-6 (Version None)
Quarter: 2011Q3

REPORT INFORMATION
  Report Type: 
  Country: None (occurrence: None)
  Receive Date: 20110719
  Receipt Date: 20100603
  Transmission Date: 20111222
  Serious: No
  Sender: FDA-Public Use
  Company Number: US-KINGPHARMUSA00001-K201000703

PATIENT
  Age: 60 Year
  Sex: Female
  Weight: 58.957 kg

DRUGS (7)
  1. METFORMIN HCL [Concomitant]
     Indication: BLOOD INSULIN INCREASED
     Dosage: UNK
     Dates: start: 20070101
  2. CYTOMEL [Suspect]
     Dosage: UNK
  3. LEVOXYL [Suspect]
     Indication: HYPOTHYROIDISM
     Dosage: 75 MCG, QAM
     Route: 048
     Dates: start: 20090101, end: 20100501
  4. LEVOXYL [Suspect]
     Dosage: 88 MCG, QAM
     Route: 048
     Dates: start: 20100501
  5. ESTRACE [Suspect]
     Dosage: UNK
     Dates: start: 19950101
  6. PAXIL [Concomitant]
     Indication: DEPRESSION
     Dosage: 40 MG, QHS
     Route: 048
  7. VITAMINS NOS [Concomitant]

REACTIONS (6)
  - MEMORY IMPAIRMENT [None]
  - SOCIAL AVOIDANT BEHAVIOUR [None]
  - SWELLING FACE [None]
  - FEELING ABNORMAL [None]
  - HYPOTHYROIDISM [None]
  - DRUG EFFECT DECREASED [None]
